FAERS Safety Report 4902396-0 (Version None)
Quarter: 2006Q1

REPORT INFORMATION
  Report Type: 
  Country: None (occurrence: None)
  Receive Date: 20060203
  Receipt Date: 20060203
  Transmission Date: 20060701
  Serious: Yes (Life-Threatening, Hospitalization, Other)
  Sender: FDA-Public Use
  Company Number: None

PATIENT
  Age: 58 Year
  Sex: Female
  Weight: 105 kg

DRUGS (14)
  1. HUMULIN N [Suspect]
     Indication: DIABETES MELLITUS NON-INSULIN-DEPENDENT
     Dosage: 174 U QD SC
     Route: 058
     Dates: start: 20011213
  2. COZAAR [Concomitant]
  3. SPIRONOLACTONE [Concomitant]
  4. LASIX [Concomitant]
  5. DARVOCET-N 50 [Concomitant]
  6. NITROGLYCERIN [Concomitant]
  7. ZOCOR [Concomitant]
  8. RHINOCORT AQUA SPRAY [Concomitant]
  9. ASPIRIN [Concomitant]
  10. COREG [Concomitant]
  11. PROTONIX [Concomitant]
  12. SPIRIVA [Concomitant]
  13. ALBUTEROL [Concomitant]
  14. ASPIRIN [Concomitant]

REACTIONS (9)
  - ACUTE MYOCARDIAL INFARCTION [None]
  - ARRHYTHMIA [None]
  - CARDIAC FAILURE CONGESTIVE [None]
  - CONDITION AGGRAVATED [None]
  - CONVULSION [None]
  - HYPOPERFUSION [None]
  - HYPOTENSION [None]
  - LUNG DISORDER [None]
  - RENAL FAILURE [None]
